FAERS Safety Report 24052112 (Version 2)
Quarter: 2024Q3

REPORT INFORMATION
  Report Type: Report from Study
  Country: US (occurrence: None)
  Receive Date: 20240704
  Receipt Date: 20240730
  Transmission Date: 20241016
  Serious: Yes (Other)
  Sender: ASTRAZENECA
  Company Number: 2024A151915

PATIENT
  Sex: Male

DRUGS (1)
  1. TAGRISSO [Suspect]
     Active Substance: OSIMERTINIB
     Indication: Lung carcinoma cell type unspecified stage I
     Dosage: 80 MG- 1 TIME A DAY
     Route: 048
     Dates: start: 202406

REACTIONS (5)
  - Ocular toxicity [Unknown]
  - Vision blurred [Unknown]
  - Dehydration [Unknown]
  - Constipation [Unknown]
  - Fatigue [Unknown]
